FAERS Safety Report 20376924 (Version 2)
Quarter: 2022Q1

REPORT INFORMATION
  Report Type: Spontaneous
  Country: JP (occurrence: JP)
  Receive Date: 20220125
  Receipt Date: 20220310
  Transmission Date: 20220424
  Serious: Yes (Hospitalization)
  Sender: FDA-Public Use
  Company Number: JP-ONO-2022JP001408

PATIENT
  Age: 67 Year
  Sex: Female
  Weight: 43 kg

DRUGS (2)
  1. OPDIVO [Suspect]
     Active Substance: NIVOLUMAB
     Indication: Gastric cancer
     Dosage: 240 MILLIGRAM, Q2WK
     Route: 041
     Dates: start: 20210212, end: 20210423
  2. OPDIVO [Suspect]
     Active Substance: NIVOLUMAB
     Dosage: UNK
     Route: 041
     Dates: start: 20210702

REACTIONS (14)
  - Hepatic function abnormal [Recovering/Resolving]
  - Blood lactate dehydrogenase decreased [Recovered/Resolved]
  - Gamma-glutamyltransferase increased [Recovering/Resolving]
  - Blood alkaline phosphatase increased [Recovered/Resolved]
  - Blood chloride increased [Recovered/Resolved]
  - Blood cholinesterase decreased [Unknown]
  - Glycosylated haemoglobin increased [Unknown]
  - Thyroid disorder [Recovered/Resolved]
  - Blood potassium decreased [Not Recovered/Not Resolved]
  - Blood albumin decreased [Not Recovered/Not Resolved]
  - Hypocalcaemia [Not Recovered/Not Resolved]
  - Protein total decreased [Not Recovered/Not Resolved]
  - C-reactive protein increased [Recovered/Resolved]
  - Blood chloride decreased [Unknown]

NARRATIVE: CASE EVENT DATE: 20210409
